FAERS Safety Report 7632739-9 (Version None)
Quarter: 2011Q3

REPORT INFORMATION
  Report Type: 
  Country: None (occurrence: None)
  Receive Date: 20110725
  Receipt Date: 20101216
  Transmission Date: 20111222
  Serious: Yes (Other)
  Sender: FDA-Public Use
  Company Number: US-BRISTOL-MYERS SQUIBB COMPANY-15445893

PATIENT
  Age: 72 Year
  Sex: Female

DRUGS (4)
  1. ZETIA [Concomitant]
     Dosage: IN MORNING
  2. ASPIRIN [Concomitant]
  3. COUMADIN [Suspect]
     Indication: ATRIAL FIBRILLATION
     Dosage: 1DF=5MG ON MONDAY AND THURSDAY AND 2.5 MG ON THE OTHER DAYS OF THE WEEK
     Dates: start: 20030601
  4. NIASPAN [Concomitant]
     Dosage: 1DF=500MG OR 1000MG QPM

REACTIONS (2)
  - COUGH [None]
  - INTERNATIONAL NORMALISED RATIO ABNORMAL [None]
